FAERS Safety Report 4351247-4 (Version None)
Quarter: 2004Q2

REPORT INFORMATION
  Report Type: 
  Country: None (occurrence: None)
  Receive Date: 20040428
  Receipt Date: 20040413
  Transmission Date: 20050107
  Serious: Yes (Hospitalization)
  Sender: FDA-Public Use
  Company Number: USA040464215

PATIENT
  Age: 5 Year
  Sex: Female
  Weight: 27 kg

DRUGS (5)
  1. ZYPREXA [Suspect]
     Indication: ATTENTION DEFICIT/HYPERACTIVITY DISORDER
     Dosage: 10 MG
     Dates: start: 20031001
  2. ZYPREXA [Suspect]
     Indication: BIPOLAR DISORDER
     Dosage: 10 MG
     Dates: start: 20031001
  3. CONCERTA [Concomitant]
  4. CLONIDINE HCL [Concomitant]
  5. RITALIN LA [Concomitant]

REACTIONS (12)
  - AGGRESSION [None]
  - APPLICATION SITE VESICLES [None]
  - BLOOD GLUCOSE INCREASED [None]
  - FEELING HOT [None]
  - FOOD CRAVING [None]
  - HALLUCINATION, AUDITORY [None]
  - INCREASED APPETITE [None]
  - MANIA [None]
  - PHYSICAL ASSAULT [None]
  - POLLAKIURIA [None]
  - POLYDIPSIA [None]
  - WEIGHT INCREASED [None]
